FAERS Safety Report 18303410 (Version 1)
Quarter: 2020Q3

REPORT INFORMATION
  Report Type: Spontaneous
  Country: US (occurrence: US)
  Receive Date: 20200923
  Receipt Date: 20200923
  Transmission Date: 20201103
  Serious: Yes (Other)
  Sender: FDA-Public Use
  Company Number: US-PFIZER INC-2020365643

PATIENT
  Age: 61 Year
  Sex: Male

DRUGS (4)
  1. CARBIDOPA LEVODOPA [Suspect]
     Active Substance: CARBIDOPA\LEVODOPA
     Dosage: UNK
  2. APOKYN [Suspect]
     Active Substance: APOMORPHINE HYDROCHLORIDE
     Dosage: UNK
  3. ROPINIROLE. [Suspect]
     Active Substance: ROPINIROLE
     Dosage: UNK
  4. SERTRALINE HCL [Suspect]
     Active Substance: SERTRALINE HYDROCHLORIDE
     Dosage: UNK

REACTIONS (2)
  - Obsessive-compulsive personality disorder [Recovered/Resolved]
  - Parkinson^s disease [Not Recovered/Not Resolved]
